FAERS Safety Report 9191861 (Version 1)
Quarter: 2013Q1

REPORT INFORMATION
  Report Type: Spontaneous
  Country: DE (occurrence: DE)
  Receive Date: 20130327
  Receipt Date: 20130327
  Transmission Date: 20140127
  Serious: Yes (Life-Threatening)
  Sender: FDA-Public Use
  Company Number: DE-009507513-1303DEU009277

PATIENT
  Age: 75 Year
  Sex: Male
  Weight: 80 kg

DRUGS (2)
  1. TEMODAL [Suspect]
     Dosage: 140 MG, DAY
     Route: 048
     Dates: start: 20130208, end: 20130221
  2. ALIZAPRIDE [Concomitant]
     Indication: NAUSEA
     Dosage: 150 MG, UNK
     Route: 048
     Dates: start: 20130208, end: 20130221

REACTIONS (5)
  - Thrombocytopenia [Not Recovered/Not Resolved]
  - Leukopenia [Not Recovered/Not Resolved]
  - Anaemia [Not Recovered/Not Resolved]
  - Pneumonia [Not Recovered/Not Resolved]
  - Agranulocytosis [Not Recovered/Not Resolved]
